FAERS Safety Report 17835580 (Version 1)
Quarter: 2020Q2

REPORT INFORMATION
  Report Type: Spontaneous
  Country: US (occurrence: US)
  Receive Date: 20200528
  Receipt Date: 20200528
  Transmission Date: 20200714
  Serious: No
  Sender: FDA-Public Use
  Company Number: US-SA-2020SA133973

PATIENT
  Age: 40 Year
  Sex: Female

DRUGS (1)
  1. DUPIXENT [Suspect]
     Active Substance: DUPILUMAB
     Indication: NASAL POLYPS
     Dosage: 300 MG

REACTIONS (7)
  - Abdominal pain [Unknown]
  - Skin abrasion [Unknown]
  - Rash papular [Unknown]
  - Condition aggravated [Recovered/Resolved]
  - Pruritus [Unknown]
  - Diarrhoea [Unknown]
  - Serum sickness [Unknown]
